FAERS Safety Report 23515714 (Version 3)
Quarter: 2025Q2

REPORT INFORMATION
  Report Type: Spontaneous
  Country: US (occurrence: US)
  Receive Date: 20240213
  Receipt Date: 20250401
  Transmission Date: 20250717
  Serious: No
  Sender: ELI LILLY AND CO
  Company Number: US-ELI_LILLY_AND_COMPANY-US202402006579

PATIENT
  Age: 53 Year
  Sex: Female

DRUGS (2)
  1. VERZENIO [Suspect]
     Active Substance: ABEMACICLIB
     Indication: Breast cancer female
     Dosage: 1 DOSAGE FORM, BID
     Route: 048
     Dates: start: 20240119
  2. VERZENIO [Suspect]
     Active Substance: ABEMACICLIB
     Dosage: 100 MG, BID
     Route: 048

REACTIONS (9)
  - Nervousness [Not Recovered/Not Resolved]
  - Anxiety [Not Recovered/Not Resolved]
  - Sleep disorder due to general medical condition, insomnia type [Not Recovered/Not Resolved]
  - Chills [Not Recovered/Not Resolved]
  - Hot flush [Recovered/Resolved]
  - Rash [Recovered/Resolved]
  - Fatigue [Not Recovered/Not Resolved]
  - Nausea [Not Recovered/Not Resolved]
  - Vomiting [Not Recovered/Not Resolved]
